FAERS Safety Report 6701907-2 (Version None)
Quarter: 2010Q2

REPORT INFORMATION
  Report Type: 
  Country: None (occurrence: None)
  Receive Date: 20100429
  Receipt Date: 20100419
  Transmission Date: 20101027
  Serious: Yes (Other)
  Sender: FDA-Public Use
  Company Number: GB-PFIZER INC-2010048719

PATIENT
  Age: 42 Year
  Sex: Female
  Weight: 62 kg

DRUGS (15)
  1. DEPO-PROVERA [Suspect]
     Indication: CONTRACEPTION
     Dosage: UNK
     Dates: start: 20100407
  2. AMILORIDE HYDROCHLORIDE [Concomitant]
  3. ATORVASTATIN [Concomitant]
  4. PARACETAMOL [Concomitant]
  5. ACETAMINOPHEN AND CODEINE PHOSPHATE [Concomitant]
  6. FLECAINIDE ACETATE [Concomitant]
  7. FUROSEMIDE [Concomitant]
  8. ISOTARD XL [Concomitant]
  9. MONTELUKAST SODIUM [Concomitant]
  10. PHYLLOCONTIN [Concomitant]
  11. SALMETEROL XINAFOATE [Concomitant]
  12. FLUTICASONE PROPIONATE [Concomitant]
  13. TRAMADOL HYDROCHLORIDE [Concomitant]
  14. VENTOLIN [Concomitant]
  15. WARFARIN SODIUM [Concomitant]

REACTIONS (7)
  - BURNING SENSATION [None]
  - DYSPNOEA [None]
  - FEELING HOT [None]
  - FLUSHING [None]
  - LIP SWELLING [None]
  - PRURITUS [None]
  - URTICARIA [None]
